FAERS Safety Report 13510445 (Version 1)
Quarter: 2017Q2

REPORT INFORMATION
  Report Type: Spontaneous
  Country: US (occurrence: US)
  Receive Date: 20170503
  Receipt Date: 20170503
  Transmission Date: 20170830
  Serious: Yes (Hospitalization, Other)
  Sender: FDA-Public Use
  Company Number: US-PFIZER INC-2017194394

PATIENT
  Age: 75 Year
  Sex: Female

DRUGS (5)
  1. REQUIP [Concomitant]
     Active Substance: ROPINIROLE HYDROCHLORIDE
     Indication: MUSCLE SPASMS
     Dosage: 4 MG, 4X/DAY
  2. NUVIGIL [Concomitant]
     Active Substance: ARMODAFINIL
     Indication: SOMNOLENCE
     Dosage: 250 MG, 1X/DAY
  3. CELEBREX [Suspect]
     Active Substance: CELECOXIB
     Indication: ARTHRITIS
     Dosage: 200 MG, 2X/DAY
  4. LYRICA [Suspect]
     Active Substance: PREGABALIN
     Indication: POLYMYALGIA RHEUMATICA
     Dosage: 150 MG, 2X/DAY
  5. WELLBUTRIN [Concomitant]
     Active Substance: BUPROPION HYDROCHLORIDE
     Indication: DEPRESSION
     Dosage: 100 MG, 2X/DAY

REACTIONS (7)
  - Dysstasia [Unknown]
  - Product use in unapproved indication [Unknown]
  - Abasia [Unknown]
  - Pain [Unknown]
  - Loss of personal independence in daily activities [Unknown]
  - Central nervous system infection [Unknown]
  - Paraplegia [Unknown]
